FAERS Safety Report 21782953 (Version 1)
Quarter: 2022Q4

REPORT INFORMATION
  Report Type: Report from Study
  Country: US (occurrence: US)
  Receive Date: 20221227
  Receipt Date: 20221227
  Transmission Date: 20230113
  Serious: No
  Sender: FDA-Public Use
  Company Number: US-ABBVIE-4214244

PATIENT
  Sex: Male

DRUGS (1)
  1. HUMIRA [Suspect]
     Active Substance: ADALIMUMAB
     Indication: Crohn^s disease
     Dosage: ONSET DATE-ENERGY DECREASED, PAIN LOCALIZED AND EXHAUSTION WAS 2022?CESSATION DATE-ENERGY DECREAS...
     Route: 058
     Dates: start: 20220603

REACTIONS (3)
  - Asthenia [Recovered/Resolved]
  - Pain [Not Recovered/Not Resolved]
  - Fatigue [Unknown]
